FAERS Safety Report 7819649-9 (Version None)
Quarter: 2011Q4

REPORT INFORMATION
  Report Type: 
  Country: None (occurrence: None)
  Receive Date: 20111013
  Receipt Date: 20110923
  Transmission Date: 20120403
  Serious: Yes (Hospitalization)
  Sender: FDA-Public Use
  Company Number: JPI-P-015557

PATIENT
  Age: 54 Year
  Sex: Female

DRUGS (3)
  1. MODAFINIL [Concomitant]
  2. XYREM [Suspect]
     Indication: CATAPLEXY
     Dosage: 5 GM (2.5 GM,2 IN 1 D),ORAL
     Route: 048
     Dates: start: 20090425
  3. VENLFAXINE [Concomitant]

REACTIONS (1)
  - BREAST CANCER [None]
